FAERS Safety Report 16024969 (Version 1)
Quarter: 2019Q1

REPORT INFORMATION
  Report Type: Spontaneous
  Country: US (occurrence: US)
  Receive Date: 20190301
  Receipt Date: 20190301
  Transmission Date: 20190418
  Serious: Yes (Other)
  Sender: FDA-Public Use
  Company Number: US-SA-2019SA052985

PATIENT
  Age: 57 Year
  Sex: Female
  Weight: 86.9 kg

DRUGS (5)
  1. TAXOTERE [Suspect]
     Active Substance: DOCETAXEL
     Indication: BREAST CANCER FEMALE
     Dosage: 195 MG, Q3W
     Route: 042
     Dates: start: 20110613, end: 20110613
  2. INSULIN [Concomitant]
     Active Substance: INSULIN NOS
  3. TAXOTERE [Suspect]
     Active Substance: DOCETAXEL
     Dosage: 195 MG, Q3W
     Route: 042
     Dates: start: 20111013, end: 20111013
  4. NEOSAR [Concomitant]
     Active Substance: CYCLOPHOSPHAMIDE
  5. CYTOXAN [Concomitant]
     Active Substance: CYCLOPHOSPHAMIDE
     Dosage: UNK

REACTIONS (1)
  - Alopecia [Recovering/Resolving]

NARRATIVE: CASE EVENT DATE: 20110701
